FAERS Safety Report 26041503 (Version 1)
Quarter: 2025Q4

REPORT INFORMATION
  Report Type: Spontaneous
  Country: US (occurrence: US)
  Receive Date: 20251113
  Receipt Date: 20251113
  Transmission Date: 20260118
  Serious: No
  Sender: ALIMERA
  Company Number: US-ALIMERA SCIENCES INC.-US-A16013-25-000277

PATIENT
  Age: 80 Year
  Sex: Female

DRUGS (1)
  1. ILUVIEN [Suspect]
     Active Substance: FLUOCINOLONE ACETONIDE
     Indication: Uveitis
     Dosage: 0.25 MICROGRAM, QD - RIGHT EYE
     Route: 031
     Dates: start: 20250819, end: 20250819

REACTIONS (3)
  - Drug dose omission by device [Unknown]
  - Patient uncooperative [Unknown]
  - Device failure [Unknown]

NARRATIVE: CASE EVENT DATE: 20250819
